FAERS Safety Report 18189895 (Version 3)
Quarter: 2020Q3

REPORT INFORMATION
  Report Type: Report from Study
  Country: CA (occurrence: CA)
  Receive Date: 20200824
  Receipt Date: 20200922
  Transmission Date: 20201103
  Serious: Yes (Death)
  Sender: FDA-Public Use
  Company Number: CA-HLS-202001118

PATIENT
  Sex: Male

DRUGS (8)
  1. HYDROMORPHONE [Concomitant]
     Active Substance: HYDROMORPHONE
     Dosage: 1 MG BID, 0.5 MG NOON
     Route: 048
     Dates: start: 202003, end: 20200620
  2. ASA [Concomitant]
     Active Substance: ASPIRIN
     Route: 048
     Dates: start: 202001, end: 20200620
  3. QUETIAPINE. [Concomitant]
     Active Substance: QUETIAPINE
     Route: 048
     Dates: start: 201902, end: 20200620
  4. CLOZARIL [Suspect]
     Active Substance: CLOZAPINE
     Indication: PRODUCT USED FOR UNKNOWN INDICATION
     Dosage: 100 MG AM?150 MG 17:00
     Route: 048
     Dates: start: 19990629, end: 20200620
  5. FUROSEMIDE. [Concomitant]
     Active Substance: FUROSEMIDE
     Route: 048
     Dates: start: 202003, end: 20200620
  6. RANITIDINE. [Concomitant]
     Active Substance: RANITIDINE
     Route: 048
     Dates: start: 201807, end: 20200620
  7. LOXAPINE. [Concomitant]
     Active Substance: LOXAPINE
     Dosage: 50 MG BID
     Route: 048
     Dates: start: 201906, end: 20200620
  8. VAL ACID [Concomitant]
     Dosage: 1000 MG AM, 2000 MG
     Route: 048
     Dates: start: 201802, end: 20200620

REACTIONS (1)
  - Lung neoplasm malignant [Fatal]
